FAERS Safety Report 7708664-1 (Version None)
Quarter: 2011Q3

REPORT INFORMATION
  Report Type: 
  Country: None (occurrence: None)
  Receive Date: 20110824
  Receipt Date: 20110824
  Transmission Date: 20111222
  Serious: Yes (Hospitalization)
  Sender: FDA-Public Use
  Company Number: None

PATIENT
  Age: 19 Year
  Sex: Female

DRUGS (8)
  1. MINOCYCLINE HCL [Concomitant]
  2. ZOLPIDEM [Concomitant]
  3. VENLAFAXINE [Concomitant]
  4. DOCUSATE [Concomitant]
  5. ONDANSETRON [Concomitant]
  6. VILAZODONE 20 MG FORREST [Suspect]
     Indication: DEPRESSION
     Dosage: 20 MG DAILY ORAL LESS THAN 1 WEEK
     Route: 048
  7. VILAZODONE 20 MG FORREST [Suspect]
     Indication: ANXIETY
     Dosage: 20 MG DAILY ORAL LESS THAN 1 WEEK
     Route: 048
  8. OXCARBAZEPINE [Concomitant]

REACTIONS (7)
  - VOMITING [None]
  - NAUSEA [None]
  - CONSTIPATION [None]
  - PALPITATIONS [None]
  - TREMOR [None]
  - SYNCOPE [None]
  - HYPOTENSION [None]
